FAERS Safety Report 24675946 (Version 1)
Quarter: 2024Q4

REPORT INFORMATION
  Report Type: Spontaneous
  Country: FI (occurrence: FI)
  Receive Date: 20241128
  Receipt Date: 20241128
  Transmission Date: 20250115
  Serious: Yes (Other)
  Sender: TEVA
  Company Number: None

PATIENT
  Age: 62 Year
  Sex: Male

DRUGS (1)
  1. TESTOSTERONE [Suspect]
     Active Substance: TESTOSTERONE
     Indication: Androgen deficiency
     Dosage: TIME INTERVAL: CYCLICAL: 1000MG/4ML SLOWLY I.M. EVERY 6-11 WEEKS;?TESTOSTERONE RATIOPHARM
     Route: 030
     Dates: start: 2024

REACTIONS (3)
  - Pulmonary oil microembolism [Recovered/Resolved]
  - Laryngeal discomfort [Recovered/Resolved]
  - Cough [Recovered/Resolved]

NARRATIVE: CASE EVENT DATE: 20241106
